FAERS Safety Report 13264505 (Version 1)
Quarter: 2017Q1

REPORT INFORMATION
  Report Type: Spontaneous
  Country: US (occurrence: US)
  Receive Date: 20170223
  Receipt Date: 20170223
  Transmission Date: 20170428
  Serious: Yes (Other)
  Sender: FDA-Public Use
  Company Number: None

PATIENT
  Age: 17 Year
  Sex: Female
  Weight: 63 kg

DRUGS (4)
  1. ZOLOFT [Suspect]
     Active Substance: SERTRALINE HYDROCHLORIDE
     Indication: DEPRESSION
     Dosage: ?          QUANTITY:1 TABLET(S);?
     Route: 048
     Dates: start: 20160910, end: 20160913
  2. PROBIOTIC [Concomitant]
     Active Substance: PROBIOTICS NOS
  3. LEXAPRO [Suspect]
     Active Substance: ESCITALOPRAM OXALATE
     Indication: DEPRESSION
     Dosage: ?          QUANTITY:1 TABLET(S);?
     Route: 048
     Dates: start: 20160915, end: 20170205
  4. VITAMIN D3 [Concomitant]
     Active Substance: CHOLECALCIFEROL

REACTIONS (17)
  - Muscle twitching [None]
  - Hyperphagia [None]
  - Weight increased [None]
  - Vomiting [None]
  - Hallucination [None]
  - Drug ineffective [None]
  - Abdominal pain upper [None]
  - Feeding disorder [None]
  - Malaise [None]
  - Gastrointestinal disorder [None]
  - Mydriasis [None]
  - Hyperhidrosis [None]
  - Feeling abnormal [None]
  - Hypoaesthesia [None]
  - Nightmare [None]
  - Abnormal behaviour [None]
  - Palpitations [None]

NARRATIVE: CASE EVENT DATE: 20161124
